FAERS Safety Report 6135950-1 (Version None)
Quarter: 2009Q1

REPORT INFORMATION
  Report Type: 
  Country: None (occurrence: None)
  Receive Date: 20090329
  Receipt Date: 20081209
  Transmission Date: 20090719
  Serious: No
  Sender: FDA-Public Use
  Company Number: US-BAUSCH-2008BL005143

PATIENT
  Sex: Female

DRUGS (2)
  1. ALAWAY [Suspect]
     Indication: KERATOCONJUNCTIVITIS SICCA
     Route: 047
     Dates: start: 20081209, end: 20081209
  2. SALAGEN [Concomitant]

REACTIONS (2)
  - EYE IRRITATION [None]
  - INSTILLATION SITE PAIN [None]
